FAERS Safety Report 4960565-8 (Version None)
Quarter: 2006Q1

REPORT INFORMATION
  Report Type: 
  Country: None (occurrence: None)
  Receive Date: 20060331
  Receipt Date: 20060331
  Transmission Date: 20060701
  Serious: No
  Sender: FDA-Public Use
  Company Number: None

PATIENT
  Age: 75 Year
  Sex: Male
  Weight: 108.8633 kg

DRUGS (1)
  1. TERAZOSIN HCL [Suspect]
     Indication: DYSURIA
     Dosage: 10MG   I PER DAY   PO
     Route: 048

REACTIONS (3)
  - DIPLOPIA [None]
  - MEDICATION ERROR [None]
  - OVERDOSE [None]
